FAERS Safety Report 13340016 (Version 2)
Quarter: 2017Q1

REPORT INFORMATION
  Report Type: Spontaneous
  Country: CH (occurrence: CH)
  Receive Date: 20170316
  Receipt Date: 20170318
  Transmission Date: 20170428
  Serious: Yes (Hospitalization, Other)
  Sender: FDA-Public Use
  Company Number: CH-BRISTOL-MYERS SQUIBB COMPANY-BMS-2017-020514

PATIENT
  Age: 62 Year
  Sex: Male
  Weight: 95 kg

DRUGS (3)
  1. OPDIVO [Suspect]
     Active Substance: NIVOLUMAB
     Indication: METASTATIC MALIGNANT MELANOMA
     Dosage: 1 MG/KG, Q3WK
     Route: 041
     Dates: start: 20161220, end: 20170202
  2. LISITRIL [Concomitant]
     Active Substance: LISINOPRIL
     Indication: PRODUCT USED FOR UNKNOWN INDICATION
     Route: 065
  3. YERVOY [Suspect]
     Active Substance: IPILIMUMAB
     Indication: METASTATIC MALIGNANT MELANOMA
     Route: 041
     Dates: start: 20161220, end: 20170202

REACTIONS (4)
  - Autoimmune arthritis [Recovered/Resolved]
  - Autoimmune colitis [Recovering/Resolving]
  - Rash maculo-papular [Recovered/Resolved]
  - Joint effusion [Unknown]

NARRATIVE: CASE EVENT DATE: 20170103
